FAERS Safety Report 6883724-6 (Version None)
Quarter: 2010Q3

REPORT INFORMATION
  Report Type: 
  Country: None (occurrence: None)
  Receive Date: 20100729
  Receipt Date: 20100726
  Transmission Date: 20110219
  Serious: Yes (Congenital Anomaly)
  Sender: FDA-Public Use
  Company Number: A0872563A

PATIENT
  Sex: Male

DRUGS (4)
  1. COMBIVIR [Suspect]
     Indication: HIV INFECTION
     Dates: start: 20031010, end: 20040320
  2. VIRACEPT [Suspect]
     Indication: HIV INFECTION
     Dates: start: 20031010, end: 20040320
  3. FERROUS SULFATE [Concomitant]
  4. TOBACCO [Concomitant]

REACTIONS (3)
  - CONGENITAL MEGACOLON [None]
  - DRUG EXPOSURE DURING PREGNANCY [None]
  - ECTOPIC KIDNEY [None]
